FAERS Safety Report 5048475-1 (Version None)
Quarter: 2006Q3

REPORT INFORMATION
  Report Type: 
  Country: None (occurrence: None)
  Receive Date: 20060705
  Receipt Date: 20060621
  Transmission Date: 20061208
  Serious: Yes (Other)
  Sender: FDA-Public Use
  Company Number: B0428200A

PATIENT
  Age: 28 Year
  Sex: Female

DRUGS (2)
  1. LAMICTAL [Suspect]
  2. CITALOPRAM (FORMULATION UNKNOWN) (CITALOPRAM) [Suspect]

REACTIONS (2)
  - CONVULSION [None]
  - MYOCLONUS [None]
